FAERS Safety Report 15902399 (Version 1)
Quarter: 2019Q1

REPORT INFORMATION
  Report Type: Spontaneous
  Country: US (occurrence: US)
  Receive Date: 20190201
  Receipt Date: 20190201
  Transmission Date: 20190417
  Serious: Yes (Other)
  Sender: FDA-Public Use
  Company Number: PHEH2019US004524

PATIENT
  Sex: Female

DRUGS (4)
  1. IBRANCE [Suspect]
     Active Substance: PALBOCICLIB
     Indication: BREAST CANCER
     Dosage: 125 MG, QD (FOR 21 DAYS AND 7 DAYS OFF)
     Route: 048
     Dates: start: 20180512
  2. FEMARA [Suspect]
     Active Substance: LETROZOLE
     Indication: BREAST CANCER
     Dosage: UNK, QD
     Route: 048
  3. IBRANCE [Suspect]
     Active Substance: PALBOCICLIB
     Dosage: 125 MG, QD (FOR 21 DAYS AND 7 DAYS OFF)
     Route: 048
     Dates: start: 20190110
  4. FEMARA [Suspect]
     Active Substance: LETROZOLE
     Dosage: UNK, QD
     Route: 048
     Dates: start: 20190110

REACTIONS (5)
  - Nausea [Unknown]
  - Leukopenia [Recovered/Resolved]
  - Dizziness [Unknown]
  - Anaemia [Recovered/Resolved]
  - Fatigue [Recovering/Resolving]
